FAERS Safety Report 4288982-2 (Version None)
Quarter: 2004Q1

REPORT INFORMATION
  Report Type: 
  Country: None (occurrence: None)
  Receive Date: 20040206
  Receipt Date: 20040129
  Transmission Date: 20041129
  Serious: Yes (Hospitalization)
  Sender: FDA-Public Use
  Company Number: 200401327

PATIENT
  Age: 37 Year
  Sex: Male

DRUGS (3)
  1. ACETAMINOPHEN [Suspect]
     Dosage: PO
     Route: 048
  2. ALCOHOL [Suspect]
  3. ACETYLCYSTEINE [Suspect]
     Indication: THERAPEUTIC AGENT TOXICITY

REACTIONS (17)
  - AGITATION [None]
  - ALCOHOL POISONING [None]
  - APNOEA [None]
  - ATRIAL FIBRILLATION [None]
  - BLOOD PRESSURE DIASTOLIC INCREASED [None]
  - CARDIO-RESPIRATORY ARREST [None]
  - ELECTROLYTE IMBALANCE [None]
  - HEART RATE INCREASED [None]
  - HEPATIC ENCEPHALOPATHY [None]
  - HEPATITIS ALCOHOLIC [None]
  - HEPATOMEGALY [None]
  - HYPOXIA [None]
  - JAUNDICE [None]
  - NODAL ARRHYTHMIA [None]
  - PANCREATITIS [None]
  - PNEUMONIA ASPIRATION [None]
  - VENTRICULAR FIBRILLATION [None]
